FAERS Safety Report 14472811 (Version 2)
Quarter: 2018Q1

REPORT INFORMATION
  Report Type: Report from Study
  Country: None (occurrence: US)
  Receive Date: 20180201
  Receipt Date: 20180219
  Transmission Date: 20180509
  Serious: Yes (Hospitalization, Other)
  Sender: FDA-Public Use
  Company Number: US-ABBVIE-18K-163-2238908-00

PATIENT
  Age: 53 Year
  Sex: Female
  Weight: 100.79 kg

DRUGS (6)
  1. AMLODIPINE [Concomitant]
     Active Substance: AMLODIPINE BESYLATE
     Indication: HYPERTENSION
  2. NAPROXEN. [Concomitant]
     Active Substance: NAPROXEN
     Indication: GASTROOESOPHAGEAL REFLUX DISEASE
  3. ZANTAC [Concomitant]
     Active Substance: RANITIDINE HYDROCHLORIDE
     Indication: GASTROOESOPHAGEAL REFLUX DISEASE
  4. COLACE [Concomitant]
     Active Substance: DOCUSATE SODIUM
     Indication: PRODUCT USED FOR UNKNOWN INDICATION
  5. HUMIRA [Suspect]
     Active Substance: ADALIMUMAB
     Indication: RHEUMATOID ARTHRITIS
     Dosage: STOP THREE MONTHS PRIOR TO SURGERY
     Route: 058
     Dates: end: 201712
  6. ARAVA [Concomitant]
     Active Substance: LEFLUNOMIDE
     Indication: PRODUCT USED FOR UNKNOWN INDICATION

REACTIONS (10)
  - Hepatic steatosis [Not Recovered/Not Resolved]
  - Fall [Recovered/Resolved]
  - Hypoaesthesia [Recovered/Resolved]
  - Muscular weakness [Recovering/Resolving]
  - Synovial cyst [Recovering/Resolving]
  - Hypoaesthesia [Not Recovered/Not Resolved]
  - Disorientation [Recovered/Resolved]
  - Weight increased [Not Recovered/Not Resolved]
  - Mobility decreased [Recovering/Resolving]
  - Hypoaesthesia [Recovering/Resolving]

NARRATIVE: CASE EVENT DATE: 2017
